FAERS Safety Report 4769883-X (Version None)
Quarter: 2005Q3

REPORT INFORMATION
  Report Type: 
  Country: None (occurrence: None)
  Receive Date: 20050915
  Receipt Date: 20050811
  Transmission Date: 20060218
  Serious: Yes (Hospitalization, Other)
  Sender: FDA-Public Use
  Company Number: 2005AP04380

PATIENT
  Age: 16318 Day
  Sex: Female

DRUGS (2)
  1. SEROQUEL [Suspect]
     Indication: SCHIZOPHRENIA
     Dosage: 36 TABLETS
     Route: 048
     Dates: start: 20050728, end: 20050729
  2. MYSLEE [Suspect]
     Indication: SCHIZOPHRENIA
     Dosage: 23 TABLETS
     Route: 048
     Dates: start: 20050728, end: 20050729

REACTIONS (6)
  - DRUG TOXICITY [None]
  - HEART RATE INCREASED [None]
  - OVERDOSE [None]
  - PYREXIA [None]
  - SUICIDE ATTEMPT [None]
  - UNRESPONSIVE TO VERBAL STIMULI [None]
